FAERS Safety Report 8788275 (Version 3)
Quarter: 2012Q4

REPORT INFORMATION
  Report Type: 
  Country: US (occurrence: US)
  Receive Date: 20120914
  Receipt Date: 20121221
  Transmission Date: 20130627
  Serious: No
  Sender: FDA-Public Use
  Company Number: US-VERTEX PHARMACEUTICAL INC.-AE-2012-011869

PATIENT
  Age: 49 Year
  Sex: Male
  Weight: 84 kg

DRUGS (8)
  1. VX-950 (TELAPREVIR) [Suspect]
     Indication: HEPATITIS C
     Dosage: 750 mg, tid
     Route: 048
     Dates: start: 20120801, end: 20121102
  2. RIBASPHERE [Suspect]
     Indication: HEPATITIS C
     Dosage: 400 mg, bid
     Route: 048
     Dates: start: 20120801, end: 20121102
  3. PEGASYS [Suspect]
     Indication: HEPATITIS C
     Dosage: 180 ?g, weekly
     Route: 058
     Dates: start: 20120801, end: 20121102
  4. URSODIOL [Concomitant]
     Dosage: 300 mg, qid
  5. MAGNESIUM OXIDE [Concomitant]
     Dosage: 400 mg, bid
  6. CALCIUM [Concomitant]
     Dosage: 500 mg, qid
  7. XANAX [Concomitant]
     Dosage: 1 mg, prn
  8. DIOVAN [Concomitant]
     Dosage: 160 mg, qd

REACTIONS (5)
  - Insomnia [Unknown]
  - Nausea [Unknown]
  - Vomiting [Unknown]
  - Diarrhoea [Unknown]
  - Drug ineffective [Unknown]
